FAERS Safety Report 16197682 (Version 1)
Quarter: 2019Q2

REPORT INFORMATION
  Report Type: Spontaneous
  Country: US (occurrence: US)
  Receive Date: 20190414
  Receipt Date: 20190414
  Transmission Date: 20190711
  Serious: No
  Sender: FDA-Public Use
  Company Number: None

PATIENT
  Age: 66 Year
  Sex: Male
  Weight: 110.25 kg

DRUGS (14)
  1. ATORVASTATIN [Concomitant]
     Active Substance: ATORVASTATIN
  2. FISH OIL [Concomitant]
     Active Substance: FISH OIL
  3. METFORMIN [Concomitant]
     Active Substance: METFORMIN HYDROCHLORIDE
  4. VITAMIN D NOS [Concomitant]
     Active Substance: VITAMIN D NOS
  5. LOSARTAN. [Concomitant]
     Active Substance: LOSARTAN
  6. THYROID MED [Concomitant]
  7. KRATOM [Suspect]
     Active Substance: HERBALS\MITRAGYNINE
     Indication: RESTLESS LEGS SYNDROME
     Route: 048
  8. HYDROXYZINE [Concomitant]
     Active Substance: HYDROXYZINE HYDROCHLORIDE
  9. ANASTRAZOLE [Concomitant]
     Active Substance: ANASTROZOLE
  10. MULTI VITAMIN [Concomitant]
     Active Substance: VITAMINS
  11. CINNAMON. [Concomitant]
     Active Substance: CINNAMON
  12. LECITHIN [Concomitant]
     Active Substance: LECITHIN
  13. MAGNESIUM [Concomitant]
     Active Substance: MAGNESIUM
  14. TESTOSTERONE. [Concomitant]
     Active Substance: TESTOSTERONE

REACTIONS (8)
  - Cognitive disorder [None]
  - Apparent death [None]
  - Blepharospasm [None]
  - Bruxism [None]
  - Hallucination [None]
  - Product contamination physical [None]
  - Constipation [None]
  - Product contamination microbial [None]

NARRATIVE: CASE EVENT DATE: 20190412
